FAERS Safety Report 12441485 (Version 3)
Quarter: 2016Q3

REPORT INFORMATION
  Report Type: Spontaneous
  Country: US (occurrence: US)
  Receive Date: 20160607
  Receipt Date: 20160727
  Transmission Date: 20161109
  Serious: No
  Sender: FDA-Public Use
  Company Number: US-PFIZER INC-2016270039

PATIENT
  Age: 47 Year
  Sex: Female
  Weight: 71 kg

DRUGS (6)
  1. KLONOPIN [Concomitant]
     Active Substance: CLONAZEPAM
     Indication: ANXIETY
     Dosage: 1.75 MG, DAILY, 0.5MG IN THE MORNING, 1MG IN THE AFTERNOON AND 0.25MG AT NIGHT
     Route: 048
     Dates: start: 1989
  2. CEFACLOR. [Concomitant]
     Active Substance: CEFACLOR
     Indication: ANTIBIOTIC THERAPY
     Dosage: 250 MG, 1X/DAY
     Route: 048
     Dates: start: 2012
  3. EFFEXOR XR [Suspect]
     Active Substance: VENLAFAXINE HYDROCHLORIDE
     Indication: ANXIETY
     Dosage: 225 MG, DAILY, 150MG IN THE MORNING AND 75MG AT NIGHT
     Route: 048
     Dates: start: 201512
  4. FANAPT [Concomitant]
     Active Substance: ILOPERIDONE
     Indication: DISCOMFORT
     Dosage: 6 MG, 1X/DAY, IN THE MORNING
     Route: 048
     Dates: start: 2013
  5. FLOVENT HFA [Concomitant]
     Active Substance: FLUTICASONE PROPIONATE
     Indication: ASTHMA
     Dosage: 110 UG, 2X/DAY, ONE PUFF INHALATION
     Route: 055
     Dates: start: 2012
  6. LOXAPINE. [Concomitant]
     Active Substance: LOXAPINE
     Indication: SCHIZOPHRENIA
     Dosage: 100 MG, 1X/DAY
     Route: 048
     Dates: start: 2010

REACTIONS (2)
  - Yawning [Recovering/Resolving]
  - Insomnia [Not Recovered/Not Resolved]

NARRATIVE: CASE EVENT DATE: 201602
